FAERS Safety Report 5872748-3 (Version None)
Quarter: 2008Q3

REPORT INFORMATION
  Report Type: 
  Country: None (occurrence: None)
  Receive Date: 20080905
  Receipt Date: 20080826
  Transmission Date: 20090109
  Serious: Yes (Other)
  Sender: FDA-Public Use
  Company Number: US-PFIZER INC-2005094665

PATIENT
  Sex: Male
  Weight: 99.8 kg

DRUGS (5)
  1. XANAX XR [Suspect]
     Indication: ANXIETY
     Route: 048
  2. XANAX XR [Suspect]
     Indication: NERVOUS SYSTEM DISORDER
  3. XANAX [Suspect]
     Indication: ANXIETY
     Route: 065
     Dates: start: 20060301, end: 20060301
  4. XANAX [Suspect]
     Indication: NERVOUS SYSTEM DISORDER
  5. ANTIHYPERTENSIVES [Concomitant]
     Route: 065

REACTIONS (12)
  - ABDOMINAL DISTENSION [None]
  - BLOOD PRESSURE INCREASED [None]
  - CONSTIPATION [None]
  - DEHYDRATION [None]
  - DEPRESSED LEVEL OF CONSCIOUSNESS [None]
  - DRUG LEVEL CHANGED [None]
  - INTRACRANIAL PRESSURE INCREASED [None]
  - MALAISE [None]
  - NIGHT SWEATS [None]
  - PARALYSIS [None]
  - PHARMACEUTICAL PRODUCT COMPLAINT [None]
  - TREMOR [None]
